FAERS Safety Report 23965657 (Version 1)
Quarter: 2024Q2

REPORT INFORMATION
  Report Type: Spontaneous
  Country: US (occurrence: US)
  Receive Date: 20240612
  Receipt Date: 20240612
  Transmission Date: 20240716
  Serious: No
  Sender: FDA-Public Use
  Company Number: US-IMMUNOGEN, INC.-US-IMGN-24-00195

PATIENT
  Sex: Female

DRUGS (23)
  1. ELAHERE [Suspect]
     Active Substance: MIRVETUXIMAB SORAVTANSINE-GYNX
     Indication: Ovarian cancer
     Dosage: 365 MILLIGRAM, 7 CYCLES RECEIVED
     Route: 042
     Dates: start: 20230911
  2. PREDNISONE [Concomitant]
     Active Substance: PREDNISONE
     Indication: Product used for unknown indication
     Dosage: UNK, QD 6X FOR 4 DAYS
  3. PREDNISONE [Concomitant]
     Active Substance: PREDNISONE
     Dosage: UNK, QD 4X FOR 4 DAYS
  4. REFRESH CELLUVISC [Concomitant]
     Active Substance: CARBOXYMETHYLCELLULOSE SODIUM
     Indication: Product used for unknown indication
     Dosage: UNK, PRN
  5. COZAAR [Concomitant]
     Active Substance: LOSARTAN POTASSIUM
     Indication: Blood pressure measurement
     Dosage: 50 MILLIGRAM, BID
  6. LEXAPRO [Concomitant]
     Active Substance: ESCITALOPRAM OXALATE
     Indication: Ovarian cancer
     Dosage: 10 MILLIGRAM, QD
  7. TYLENOL [Concomitant]
     Active Substance: ACETAMINOPHEN
     Indication: Product used for unknown indication
     Dosage: 500 MILLIGRAM, 2 TABLETS 3-4 TIMES Q6H
  8. ALPHA LIPOIC ACID [Concomitant]
     Active Substance: .ALPHA.-LIPOIC ACID
     Indication: Product used for unknown indication
     Dosage: UNK, UNK
  9. MUSHROOM COMPLEX [ALLIUM SATIVUM;GANODERMA LUCIDUM;HERICIUM ERINACEUS; [Concomitant]
     Indication: Product used for unknown indication
     Dosage: UNK, UNK
  10. GREEN TEA EXTRACT [CAMELLIA SINENSIS] [Concomitant]
     Indication: Product used for unknown indication
     Dosage: UNK, UNK
  11. HESPERIDIN [Concomitant]
     Active Substance: HESPERIDIN
     Indication: Product used for unknown indication
     Dosage: UNK, UNK
  12. HONOPURE [Concomitant]
     Indication: Product used for unknown indication
     Dosage: UNK, UNK
  13. MELATONIN [Concomitant]
     Active Substance: MELATONIN
     Indication: Product used for unknown indication
     Dosage: UNK, UNK
  14. VITAMINS [Concomitant]
     Active Substance: VITAMINS
     Indication: Product used for unknown indication
     Dosage: UNK, UNK
  15. VITAMIN B COMPLEX [Concomitant]
     Active Substance: CYANOCOBALAMIN\DEXPANTHENOL\NIACINAMIDE\PYRIDOXINE HYDROCHLORIDE\RIBOFLAVIN 5^-PHOSPHATE SODIUM\THIA
     Indication: Product used for unknown indication
     Dosage: UNK, UNK
  16. ASCORBIC ACID [Concomitant]
     Active Substance: ASCORBIC ACID
     Indication: Product used for unknown indication
     Dosage: UNK, UNK
  17. TOCOPHEROL [Concomitant]
     Active Substance: TOCOPHEROL
     Indication: Product used for unknown indication
     Dosage: UNK, UNK
  18. FISH OIL [Concomitant]
     Active Substance: FISH OIL
     Indication: Product used for unknown indication
     Dosage: UNK, UNK
  19. CALCIUM\CHOLECALCIFEROL\MAGNESIUM [Concomitant]
     Active Substance: CALCIUM\CHOLECALCIFEROL\MAGNESIUM
     Indication: Product used for unknown indication
     Dosage: UNK, UNK
  20. IRON COMPLEX [ASCORBIC ACID;CALCIUM;COPPER;FOLIC ACID;IRON;VITAMIN B12 [Concomitant]
     Indication: Product used for unknown indication
     Dosage: UNK, UNK
  21. MIRALAX [Concomitant]
     Active Substance: POLYETHYLENE GLYCOL 3350
     Indication: Product used for unknown indication
     Dosage: UNK, UNK
  22. METAMUCIL CALCIUM [Concomitant]
     Indication: Abnormal faeces
     Dosage: UNK, UNK
  23. COLLAGEN [Concomitant]
     Active Substance: COLLAGEN
     Indication: Product used for unknown indication
     Dosage: UNK UNK, QD IN THE MORNING

REACTIONS (3)
  - Brain fog [Unknown]
  - Dry eye [Not Recovered/Not Resolved]
  - Arthralgia [Recovered/Resolved]

NARRATIVE: CASE EVENT DATE: 20240101
